FAERS Safety Report 9391285 (Version 3)
Quarter: 2013Q3

REPORT INFORMATION
  Report Type: Spontaneous
  Country: FR (occurrence: FR)
  Receive Date: 20130709
  Receipt Date: 20130909
  Transmission Date: 20140515
  Serious: Yes (Hospitalization)
  Sender: FDA-Public Use
  Company Number: FR-PFIZER INC-2013198761

PATIENT
  Age: 63 Year
  Sex: Female

DRUGS (8)
  1. AMLOR [Suspect]
     Indication: HYPERTENSION
     Dosage: 5 MG, 2X/DAY
     Route: 048
     Dates: start: 201202, end: 20130612
  2. ROVALCYTE [Suspect]
     Indication: CYTOMEGALOVIRUS INFECTION
     Dosage: UNK
     Route: 048
     Dates: start: 20130529, end: 20130611
  3. CELLCEPT [Suspect]
     Indication: RENAL TRANSPLANT
     Dosage: 500 MG, 3X/DAY
     Route: 048
     Dates: start: 201008, end: 20130611
  4. NEORAL [Suspect]
     Indication: RENAL TRANSPLANT
     Dosage: 60 MG, 2X/DAY
     Route: 048
     Dates: start: 201008
  5. SOLUPRED [Suspect]
     Indication: RENAL TRANSPLANT
     Dosage: 10 MG, DAILY
     Route: 048
     Dates: start: 201008
  6. LASILIX [Suspect]
     Indication: RENAL FAILURE
     Dosage: 40 MG, DAILY
     Route: 048
     Dates: start: 201008
  7. OCTAGAM [Suspect]
     Indication: CYTOMEGALOVIRUS INFECTION
     Dosage: 30 G, 2X/WEEK
     Route: 042
     Dates: start: 20130515, end: 20130611
  8. CYMEVAN [Concomitant]
     Indication: CYTOMEGALOVIRUS INFECTION
     Dosage: UNK
     Dates: start: 20130515, end: 20130529

REACTIONS (2)
  - Pancytopenia [Recovered/Resolved with Sequelae]
  - Cytomegalovirus infection [Unknown]
